FAERS Safety Report 16703879 (Version 1)
Quarter: 2019Q3

REPORT INFORMATION
  Report Type: Spontaneous
  Country: US (occurrence: US)
  Receive Date: 20190628
  Receipt Date: 20190628
  Transmission Date: 20191004
  Serious: No
  Sender: FDA-Public Use
  Company Number: None

PATIENT
  Age: 57 Year
  Sex: Female
  Weight: 0 kg

DRUGS (1)
  1. COSENTYX [Suspect]
     Active Substance: SECUKINUMAB
     Indication: PSORIASIS
     Dosage: INJECT 300MG (2PENS) SUBCUTANEOUSLY EVERY  WEEK FOR 5  WEEKS AS DIRECTED
     Route: 058
     Dates: start: 201905

REACTIONS (2)
  - Malaise [None]
  - Treatment failure [None]
